FAERS Safety Report 17072565 (Version 1)
Quarter: 2019Q4

REPORT INFORMATION
  Report Type: Spontaneous
  Country: US (occurrence: US)
  Receive Date: 20191028
  Receipt Date: 20191028
  Transmission Date: 20200122
  Serious: No
  Sender: FDA-Public Use
  Company Number: None

PATIENT

DRUGS (2)
  1. DEXMEDETOMIDINE. [Suspect]
     Active Substance: DEXMEDETOMIDINE
     Dosage: ?          OTHER STRENGTH:200MCG/2ML;?
  2. METARAMINOL BITARTRATE [Suspect]
     Active Substance: METARAMINOL BITARTRATE

REACTIONS (1)
  - Product packaging confusion [None]
